FAERS Safety Report 15786815 (Version 1)
Quarter: 2019Q1

REPORT INFORMATION
  Report Type: Spontaneous
  Country: DE (occurrence: DE)
  Receive Date: 20190103
  Receipt Date: 20190103
  Transmission Date: 20190417
  Serious: Yes (Other)
  Sender: FDA-Public Use
  Company Number: DE-MYLANLABS-2018M1097373

PATIENT
  Age: 18 Year
  Sex: Female
  Weight: 55 kg

DRUGS (6)
  1. CITALOPRAM [Suspect]
     Active Substance: CITALOPRAM HYDROBROMIDE
     Indication: PRODUCT USED FOR UNKNOWN INDICATION
     Dosage: UNK UNK, QD
     Route: 048
  2. RANIBETA [Suspect]
     Active Substance: RANITIDINE HYDROCHLORIDE
     Indication: PRODUCT USED FOR UNKNOWN INDICATION
     Dosage: UNK (RANIBETA 150)
     Route: 048
  3. RANIBETA [Suspect]
     Active Substance: RANITIDINE HYDROCHLORIDE
     Dosage: 30 DOSAGE FORM, QD (RANIBETA 150)
     Route: 048
     Dates: start: 20180614, end: 20180614
  4. CITALOPRAM [Suspect]
     Active Substance: CITALOPRAM HYDROBROMIDE
     Dosage: 40 TABLETS MAXIMUM
     Route: 048
     Dates: start: 20180614, end: 20180614
  5. DESLORATADIN GLENMARK [Suspect]
     Active Substance: DESLORATADINE
     Dosage: 30 TABLETS MAXIMUM
     Route: 048
     Dates: start: 20180614, end: 20180614
  6. DESLORATADIN GLENMARK [Suspect]
     Active Substance: DESLORATADINE
     Indication: PRODUCT USED FOR UNKNOWN INDICATION
     Dosage: UNK UNK, QD
     Route: 048

REACTIONS (5)
  - Nausea [Unknown]
  - Sinus tachycardia [Unknown]
  - Systolic hypertension [Unknown]
  - Intentional overdose [Unknown]
  - Somnolence [Unknown]

NARRATIVE: CASE EVENT DATE: 20180614
